FAERS Safety Report 8177550-8 (Version None)
Quarter: 2012Q1

REPORT INFORMATION
  Report Type: 
  Country: None (occurrence: None)
  Receive Date: 20120301
  Receipt Date: 20120216
  Transmission Date: 20120608
  Serious: Yes (Hospitalization, Other)
  Sender: FDA-Public Use
  Company Number: DE-MYLANLABS-2012S1003480

PATIENT
  Age: 27 Year
  Sex: Female
  Weight: 63 kg

DRUGS (5)
  1. PREDNISOLONE [Suspect]
     Indication: CROHN'S DISEASE
     Dosage: 15 [MG/D ]
     Route: 048
  2. AZATHIOPRINE [Suspect]
     Indication: CROHN'S DISEASE
     Dosage: 150 [MG/D ]/ WEEK 0-4.3 AND 18-27.5
     Route: 048
     Dates: start: 20080726
  3. REMICADE [Suspect]
     Indication: CROHN'S DISEASE
     Dosage: 300 [MG/EVERY 8 WKS ]
     Route: 042
  4. METHYLPREDNISOLONE [Suspect]
     Indication: CROHN'S DISEASE
     Dates: start: 20090126, end: 20090205
  5. FEMIBION [Concomitant]
     Indication: PROPHYLAXIS OF NEURAL TUBE DEFECT
     Dosage: 0.4 [MG/D ]
     Route: 048

REACTIONS (4)
  - MATERNAL EXPOSURE DURING PREGNANCY [None]
  - HELLP SYNDROME [None]
  - PREMATURE SEPARATION OF PLACENTA [None]
  - HAEMORRHAGE [None]
